FAERS Safety Report 4868583-5 (Version None)
Quarter: 2005Q4

REPORT INFORMATION
  Report Type: 
  Country: None (occurrence: None)
  Receive Date: 20051223
  Receipt Date: 20051215
  Transmission Date: 20060501
  Serious: Yes (Hospitalization)
  Sender: FDA-Public Use
  Company Number: 2005169546

PATIENT
  Age: 89 Year
  Sex: Female

DRUGS (3)
  1. NIFEDIPINE [Suspect]
     Indication: ESSENTIAL HYPERTENSION
     Dosage: 30 MG, ORAL
     Route: 048
  2. RHEOFLUX (TROXERUTIN) [Concomitant]
  3. CALCIDOSE (CALCIUM CARBONATE) [Concomitant]

REACTIONS (4)
  - CONDITION AGGRAVATED [None]
  - NECROSIS [None]
  - PEMPHIGOID [None]
  - PURPURA [None]
